FAERS Safety Report 4731824-9 (Version None)
Quarter: 2005Q3

REPORT INFORMATION
  Report Type: 
  Country: None (occurrence: None)
  Receive Date: 20050802
  Receipt Date: 20050802
  Transmission Date: 20060218
  Serious: Yes (Other)
  Sender: FDA-Public Use
  Company Number: None

PATIENT
  Age: 25 Year
  Sex: Female
  Weight: 44.4525 kg

DRUGS (2)
  1. DEPO-PROVERA [Suspect]
     Indication: CONTRACEPTION
     Dosage: EVERY 3 MONTHS   INTRAMUSCU
     Route: 030
     Dates: start: 20040708, end: 20050318
  2. DEPO-PROVERA [Suspect]
     Indication: HAEMORRHAGE
     Dosage: EVERY 3 MONTHS   INTRAMUSCU
     Route: 030
     Dates: start: 20040708, end: 20050318

REACTIONS (1)
  - TOOTH DECALCIFICATION [None]
